FAERS Safety Report 5185764-4 (Version None)
Quarter: 2006Q4

REPORT INFORMATION
  Report Type: 
  Country: None (occurrence: None)
  Receive Date: 20061220
  Receipt Date: 20061208
  Transmission Date: 20070319
  Serious: Yes (Other)
  Sender: FDA-Public Use
  Company Number: US-ROCHE-474414

PATIENT
  Age: 79 Year
  Sex: Female
  Weight: 53.1 kg

DRUGS (14)
  1. BONIVA [Suspect]
     Indication: OSTEOPOROSIS
     Route: 048
     Dates: start: 20060415
  2. HYDROCHLOROTHIAZIDE [Concomitant]
  3. MIRALAX [Concomitant]
     Indication: CONSTIPATION
  4. FOLIC ACID [Concomitant]
  5. PREMARIN [Concomitant]
     Dosage: THE PATIENT REPORTED TAKING THIS FOR 33 YEARS
  6. LIPITOR [Concomitant]
  7. ASPIRIN [Concomitant]
  8. CALCIUM/VITAMIN D [Concomitant]
     Dosage: THE PATIENT REPORTED TAKING CALCIUM 1500 MILLIGRAMS/DAY AND VITAMIN D 400 MILLIGRAMS/DAY
  9. PSYLLIUM [Concomitant]
     Indication: CONSTIPATION
  10. VITAMIN E [Concomitant]
  11. ASCORBIC ACID [Concomitant]
  12. VITAMIN B6 [Concomitant]
  13. VITAMIN B-12 [Concomitant]
  14. FISH OIL [Concomitant]

REACTIONS (8)
  - BLOOD POTASSIUM DECREASED [None]
  - BLOOD SODIUM DECREASED [None]
  - CONVULSION [None]
  - DIARRHOEA [None]
  - DYSPNOEA [None]
  - FEELING ABNORMAL [None]
  - HYPOAESTHESIA [None]
  - SHOCK [None]
